FAERS Safety Report 5522007-3 (Version None)
Quarter: 2007Q4

REPORT INFORMATION
  Report Type: 
  Country: None (occurrence: None)
  Receive Date: 20071120
  Receipt Date: 20071115
  Transmission Date: 20080405
  Serious: Yes (Other)
  Sender: FDA-Public Use
  Company Number: GB-ABBOTT-07P-167-0424829-00

PATIENT
  Sex: Male

DRUGS (1)
  1. REDUCTIL [Suspect]
     Indication: OBESITY
     Dates: start: 20070101, end: 20070701

REACTIONS (1)
  - CARDIOMYOPATHY [None]
